FAERS Safety Report 17280317 (Version 2)
Quarter: 2020Q1

REPORT INFORMATION
  Report Type: Report from Study
  Country: None (occurrence: NL)
  Receive Date: 20200117
  Receipt Date: 20200121
  Transmission Date: 20200409
  Serious: Yes (Hospitalization, Other)
  Sender: FDA-Public Use
  Company Number: NL-ABBVIE-20K-114-3231985-00

PATIENT
  Age: 13 Year
  Sex: Male
  Weight: 37.8 kg

DRUGS (7)
  1. VENETOCLAX. [Suspect]
     Active Substance: VENETOCLAX
     Indication: NEUROBLASTOMA
     Dosage: 250 MG, QD
     Route: 048
     Dates: start: 20180206, end: 20180206
  2. VENETOCLAX. [Suspect]
     Active Substance: VENETOCLAX
     Indication: REFRACTORY CANCER
     Dosage: 500 MG, QD
     Route: 048
     Dates: start: 20180207, end: 20180405
  3. COTRIMOXAZOL [Concomitant]
     Active Substance: SULFAMETHOXAZOLE\TRIMETHOPRIM
     Indication: INFECTION PROPHYLAXIS
     Dosage: 720 MG, QD (3 DAYS)
     Route: 048
     Dates: start: 20180209
  4. CALCI CHEW [Concomitant]
     Indication: OSTEOPOROSIS PROPHYLAXIS
     Dosage: 500 MG, QD
     Route: 048
     Dates: start: 20160823
  5. VENETOCLAX. [Suspect]
     Active Substance: VENETOCLAX
     Indication: RECURRENT CANCER
  6. TOPOTECAN [Suspect]
     Active Substance: TOPOTECAN HYDROCHLORIDE
     Indication: REFRACTORY CANCER
     Dosage: 0.75 MG/M2, (GIVEN 5 DAYS OF A 21 DAY CYCLE)
     Route: 042
     Dates: start: 20180328
  7. CYCLOPHOSPHAMID [Suspect]
     Active Substance: CYCLOPHOSPHAMIDE
     Indication: NEOPLASM MALIGNANT
     Dosage: 250 MG/M2, (GIVEN FOR 5 DAYS OF EVERY 21 DAY CYCLE)
     Route: 065
     Dates: start: 20160620, end: 20161216

REACTIONS (6)
  - Fatigue [Unknown]
  - Micrococcus test positive [Unknown]
  - Fluid intake reduced [Unknown]
  - Hypophagia [Unknown]
  - Pyrexia [Not Recovered/Not Resolved]
  - Vascular device infection [Recovered/Resolved]

NARRATIVE: CASE EVENT DATE: 20180405
